FAERS Safety Report 14650042 (Version 1)
Quarter: 2018Q1

REPORT INFORMATION
  Report Type: Spontaneous
  Country: US (occurrence: US)
  Receive Date: 20180316
  Receipt Date: 20180316
  Transmission Date: 20180509
  Serious: Yes (Other)
  Sender: FDA-Public Use
  Company Number: None

PATIENT
  Age: 78 Year
  Sex: Male
  Weight: 77.11 kg

DRUGS (1)
  1. FLONASE [Suspect]
     Active Substance: FLUTICASONE PROPIONATE
     Indication: SINUS CONGESTION
     Route: 045

REACTIONS (5)
  - Herpes zoster [None]
  - Pain of skin [None]
  - Immunosuppression [None]
  - Rhinalgia [None]
  - Eye pain [None]

NARRATIVE: CASE EVENT DATE: 20180303
